FAERS Safety Report 24532424 (Version 1)
Quarter: 2024Q4

REPORT INFORMATION
  Report Type: Spontaneous
  Country: US (occurrence: US)
  Receive Date: 20241022
  Receipt Date: 20241022
  Transmission Date: 20250115
  Serious: Yes (Other)
  Sender: JUBILANT
  Company Number: None

PATIENT
  Age: 69 Year
  Sex: Female

DRUGS (2)
  1. LEVOFLOXACIN [Suspect]
     Active Substance: LEVOFLOXACIN
     Indication: Sepsis
     Dosage: UNK,  UNK
     Route: 048
  2. METRONIDAZOLE [Concomitant]
     Active Substance: METRONIDAZOLE
     Indication: Sepsis
     Dosage: UNK,  UNK

REACTIONS (5)
  - Pain [Recovering/Resolving]
  - Hypoaesthesia [Recovering/Resolving]
  - Neuropathy peripheral [Recovering/Resolving]
  - Paraesthesia [Recovering/Resolving]
  - Gait disturbance [Recovering/Resolving]
